FAERS Safety Report 17961935 (Version 1)
Quarter: 2020Q2

REPORT INFORMATION
  Report Type: Report from Study
  Country: None (occurrence: NL)
  Receive Date: 20200629
  Receipt Date: 20200629
  Transmission Date: 20200714
  Serious: Yes (Other)
  Sender: FDA-Public Use
  Company Number: NL-ABBVIE-20K-114-3459197-00

PATIENT
  Sex: Male
  Weight: 78 kg

DRUGS (1)
  1. DUODOPA [Suspect]
     Active Substance: CARBIDOPA\LEVODOPA
     Indication: PRODUCT USED FOR UNKNOWN INDICATION
     Dosage: 24 HOUR ADMINISTRATION
     Route: 050

REACTIONS (7)
  - Muscle spasms [Not Recovered/Not Resolved]
  - Unresponsive to stimuli [Recovered/Resolved]
  - Protrusion tongue [Recovered/Resolved]
  - Loss of consciousness [Recovered/Resolved]
  - Muscle rigidity [Recovered/Resolved]
  - Hyperkinesia [Not Recovered/Not Resolved]
  - Dyskinesia [Not Recovered/Not Resolved]
